FAERS Safety Report 15783590 (Version 2)
Quarter: 2019Q2

REPORT INFORMATION
  Report Type: Spontaneous
  Country: TW (occurrence: TW)
  Receive Date: 20190102
  Receipt Date: 20190424
  Transmission Date: 20190711
  Serious: Yes (Other)
  Sender: FDA-Public Use
  Company Number: PHHY2018TW198557

PATIENT
  Age: 71 Year
  Sex: Female

DRUGS (4)
  1. VINCRISTINE [Suspect]
     Active Substance: VINCRISTINE
     Indication: NATURAL KILLER-CELL LEUKAEMIA
     Dosage: UNK
     Route: 065
     Dates: start: 20151221
  2. ENTECAVIR. [Suspect]
     Active Substance: ENTECAVIR
     Indication: ANTIVIRAL PROPHYLAXIS
     Route: 065
  3. PREDNISONE. [Suspect]
     Active Substance: PREDNISONE
     Indication: NATURAL KILLER-CELL LEUKAEMIA
     Dosage: 10 MG, UNK
     Route: 048
     Dates: start: 20151221
  4. CYCLOPHOSPHAMIDE. [Suspect]
     Active Substance: CYCLOPHOSPHAMIDE
     Indication: NATURAL KILLER-CELL LEUKAEMIA
     Dosage: UNK
     Route: 065
     Dates: start: 20151221

REACTIONS (2)
  - Glomerular filtration rate decreased [Recovered/Resolved]
  - Blood creatinine increased [Recovered/Resolved]

NARRATIVE: CASE EVENT DATE: 20160310
